FAERS Safety Report 7157938-4 (Version None)
Quarter: 2010Q4

REPORT INFORMATION
  Report Type: 
  Country: None (occurrence: None)
  Receive Date: 20101214
  Receipt Date: 20101206
  Transmission Date: 20110411
  Serious: Yes (Other)
  Sender: FDA-Public Use
  Company Number: US-JNJFOC-20101203375

PATIENT
  Age: 82 Year
  Sex: Female

DRUGS (1)
  1. NUCYNTA [Suspect]
     Indication: PROCEDURAL PAIN
     Dosage: AS NEEDED
     Route: 048

REACTIONS (1)
  - HEPATIC ENZYME INCREASED [None]
